FAERS Safety Report 6587801-9 (Version None)
Quarter: 2010Q1

REPORT INFORMATION
  Report Type: 
  Country: None (occurrence: None)
  Receive Date: 20100218
  Receipt Date: 20100208
  Transmission Date: 20100710
  Serious: Yes (Hospitalization, Disabling, Other)
  Sender: FDA-Public Use
  Company Number: PHHY2010DO07011

PATIENT
  Age: 11 Year
  Sex: Male

DRUGS (1)
  1. TEGRETOL [Suspect]
     Indication: EPILEPSY
     Route: 048

REACTIONS (5)
  - APHASIA [None]
  - BLINDNESS [None]
  - DEAFNESS [None]
  - STEVENS-JOHNSON SYNDROME [None]
  - SURGERY [None]
